FAERS Safety Report 5051637-0 (Version None)
Quarter: 2006Q3

REPORT INFORMATION
  Report Type: 
  Country: None (occurrence: None)
  Receive Date: 20060714
  Receipt Date: 20060703
  Transmission Date: 20061208
  Serious: Yes (Other)
  Sender: FDA-Public Use
  Company Number: 2006012177

PATIENT
  Age: 37 Year
  Sex: Female
  Weight: 64 kg

DRUGS (1)
  1. LAMICTAL [Suspect]
     Dosage: 700MG SINGLE DOSE
     Route: 048
     Dates: start: 20060703, end: 20060703

REACTIONS (1)
  - DRUG ABUSER [None]
